FAERS Safety Report 8853871 (Version 3)
Quarter: 2013Q4

REPORT INFORMATION
  Report Type: Spontaneous
  Country: US (occurrence: None)
  Receive Date: 20120426
  Receipt Date: 20131226
  Transmission Date: 20140711
  Serious: Yes (Other)
  Sender: FDA-Public Use
  Company Number: PHEH2011US011587

PATIENT
  Age: 39 Year
  Sex: Female

DRUGS (2)
  1. GILENYA [Suspect]
     Indication: MULTIPLE SCLEROSIS
     Route: 048
     Dates: start: 20111202, end: 20111204
  2. COPAXONE (GLATIRAMER ACETATE) [Concomitant]

REACTIONS (9)
  - Sensation of heaviness [None]
  - Incorrect dose administered [None]
  - Eye swelling [None]
  - Abdominal discomfort [None]
  - Vision blurred [None]
  - Migraine [None]
  - Wrong technique in drug usage process [None]
  - Fatigue [None]
  - Gait disturbance [None]
